FAERS Safety Report 11995993 (Version 1)
Quarter: 2016Q1

REPORT INFORMATION
  Report Type: Spontaneous
  Country: TR (occurrence: TR)
  Receive Date: 20160203
  Receipt Date: 20160203
  Transmission Date: 20160526
  Serious: Yes (Other)
  Sender: FDA-Public Use
  Company Number: PHHY2016TR003318

PATIENT
  Age: 6 Year
  Sex: Female

DRUGS (2)
  1. LAMOTRIGINE. [Interacting]
     Active Substance: LAMOTRIGINE
     Indication: GENERALISED TONIC-CLONIC SEIZURE
     Route: 065
  2. VALPROIC ACID. [Suspect]
     Active Substance: VALPROIC ACID
     Indication: GENERALISED TONIC-CLONIC SEIZURE
     Route: 065

REACTIONS (3)
  - Leukocytosis [Unknown]
  - Drug interaction [Unknown]
  - Stevens-Johnson syndrome [Recovering/Resolving]
